FAERS Safety Report 24061666 (Version 1)
Quarter: 2024Q3

REPORT INFORMATION
  Report Type: Spontaneous
  Country: US (occurrence: None)
  Receive Date: 20240706
  Receipt Date: 20240706
  Transmission Date: 20241016
  Serious: No
  Sender: Public
  Company Number: None

PATIENT
  Age: 70 Year
  Sex: Female
  Weight: 57.2 kg

DRUGS (1)
  1. CARBOPLATIN [Suspect]
     Active Substance: CARBOPLATIN

REACTIONS (4)
  - Lymphocyte count increased [None]
  - Neutrophil count increased [None]
  - White blood cell count increased [None]
  - Therapy interrupted [None]

NARRATIVE: CASE EVENT DATE: 20240614
